FAERS Safety Report 9106294 (Version 2)
Quarter: 2013Q2

REPORT INFORMATION
  Report Type: Spontaneous
  Country: DE (occurrence: DE)
  Receive Date: 20130220
  Receipt Date: 20130408
  Transmission Date: 20140414
  Serious: Yes (Hospitalization, Other)
  Sender: FDA-Public Use
  Company Number: DE-ROCHE-1193050

PATIENT
  Age: 56 Year
  Sex: Female
  Weight: 60 kg

DRUGS (7)
  1. AVASTIN [Suspect]
     Indication: OVARIAN CANCER
     Route: 042
     Dates: start: 20121026
  2. CARBOPLATIN [Suspect]
     Indication: OVARIAN CANCER
     Route: 042
     Dates: start: 20121024
  3. PACLITAXEL [Suspect]
     Indication: OVARIAN CANCER
     Route: 042
     Dates: start: 20121024
  4. BAYOTENSIN [Concomitant]
     Indication: HYPERTENSION
     Route: 048
     Dates: start: 20130125
  5. APREPITANT [Concomitant]
     Indication: VOMITING
     Route: 048
     Dates: start: 20121026
  6. DEXAMETHASONE [Concomitant]
     Indication: VOMITING
     Route: 048
     Dates: start: 20121025
  7. DEXAMETHASONE [Concomitant]
     Route: 048
     Dates: start: 20121026

REACTIONS (1)
  - Grand mal convulsion [Recovered/Resolved]
